FAERS Safety Report 7326222-8 (Version None)
Quarter: 2011Q1

REPORT INFORMATION
  Report Type: 
  Country: None (occurrence: None)
  Receive Date: 20110302
  Receipt Date: 20101007
  Transmission Date: 20110831
  Serious: Yes (Hospitalization)
  Sender: FDA-Public Use
  Company Number: A0886391A

PATIENT
  Age: 55 Year
  Sex: Female

DRUGS (1)
  1. ROSIGLITAZONE MALEATE [Suspect]
     Route: 048
     Dates: start: 20061101, end: 20080501

REACTIONS (1)
  - PARALYSIS [None]
